FAERS Safety Report 16908143 (Version 1)
Quarter: 2019Q4

REPORT INFORMATION
  Report Type: Spontaneous
  Country: US (occurrence: US)
  Receive Date: 20191011
  Receipt Date: 20191011
  Transmission Date: 20200122
  Serious: No
  Sender: FDA-Public Use
  Company Number: US-ASTRAZENECA-2019SF30400

PATIENT
  Sex: Female

DRUGS (1)
  1. FASENRA [Suspect]
     Active Substance: BENRALIZUMAB
     Route: 058

REACTIONS (7)
  - Headache [Unknown]
  - Feeling abnormal [Unknown]
  - Asthenia [Unknown]
  - Infection [Unknown]
  - Depression [Unknown]
  - Malaise [Unknown]
  - Bronchitis [Unknown]
